FAERS Safety Report 7775886-3 (Version None)
Quarter: 2011Q3

REPORT INFORMATION
  Report Type: 
  Country: None (occurrence: None)
  Receive Date: 20110923
  Receipt Date: 20110912
  Transmission Date: 20111222
  Serious: Yes (Hospitalization, Other)
  Sender: FDA-Public Use
  Company Number: US-ELI_LILLY_AND_COMPANY-US201012000098

PATIENT
  Sex: Female

DRUGS (22)
  1. COUMADIN [Concomitant]
  2. VITAMIN B-12 [Concomitant]
     Dosage: UNK, MONTHLY (1/M)
  3. ACIDOPHILIS [Concomitant]
  4. CRESTOR [Concomitant]
  5. HYDRALAZINE HCL [Concomitant]
  6. REMERON [Concomitant]
  7. WELLBUTRIN [Concomitant]
  8. FORTEO [Suspect]
     Dosage: 20 UG, QD
     Route: 058
  9. NORVASC [Concomitant]
  10. OMEPRAZOLE [Concomitant]
  11. VITAMIN D [Concomitant]
  12. CALCIUM CARBONATE [Concomitant]
  13. EXELON [Concomitant]
  14. MEGACE [Concomitant]
  15. CRANBERRY [Concomitant]
  16. SONATA [Concomitant]
  17. ASCORBIC ACID [Concomitant]
  18. SINEMET [Concomitant]
  19. FORTEO [Suspect]
     Indication: OSTEOPOROSIS
     Dosage: 20 UG, DAILY (1/D)
     Route: 058
     Dates: start: 20101019
  20. BUSPAR [Concomitant]
  21. FERROUS SULFATE TAB [Concomitant]
  22. MACROBID [Concomitant]

REACTIONS (7)
  - CYSTITIS [None]
  - THROMBOSIS [None]
  - DEMENTIA [None]
  - DYSPNOEA [None]
  - LACERATION [None]
  - BLOOD DISORDER [None]
  - CONTUSION [None]
